FAERS Safety Report 6744416-7 (Version None)
Quarter: 2010Q2

REPORT INFORMATION
  Report Type: 
  Country: None (occurrence: None)
  Receive Date: 20100527
  Receipt Date: 20100518
  Transmission Date: 20101027
  Serious: Yes (Hospitalization)
  Sender: FDA-Public Use
  Company Number: FR-PFIZER INC-2010062806

PATIENT
  Age: 34 Year
  Sex: Female

DRUGS (2)
  1. RELPAX [Suspect]
     Dosage: 40 MG
  2. PROZAC [Concomitant]
     Dosage: UNK

REACTIONS (1)
  - CEREBROVASCULAR ACCIDENT [None]
